FAERS Safety Report 10362952 (Version 6)
Quarter: 2018Q4

REPORT INFORMATION
  Report Type: Spontaneous
  Country: US (occurrence: US)
  Receive Date: 20140805
  Receipt Date: 20181228
  Transmission Date: 20190204
  Serious: Yes (Hospitalization, Disabling, Other)
  Sender: FDA-Public Use
  Company Number: US-PFIZER INC-2014216556

PATIENT
  Age: 33 Year
  Sex: Female
  Weight: 82 kg

DRUGS (19)
  1. PAXIL [Concomitant]
     Active Substance: PAROXETINE HYDROCHLORIDE
     Indication: ANXIETY
  2. VENTOLIN [Concomitant]
     Active Substance: ALBUTEROL SULFATE
     Dosage: UNK
     Dates: start: 1996
  3. PREVACID [Concomitant]
     Active Substance: LANSOPRAZOLE
     Dosage: UNK
     Dates: start: 2009
  4. DEPO-MEDROL [Suspect]
     Active Substance: METHYLPREDNISOLONE ACETATE
     Indication: CONTRACEPTION
  5. BUSPIRONE [Concomitant]
     Active Substance: BUSPIRONE HYDROCHLORIDE
  6. ALBUTEROL INHALER [Concomitant]
     Active Substance: ALBUTEROL
     Dosage: UNK
     Dates: start: 1996
  7. VITAMIN D [Concomitant]
     Active Substance: CHOLECALCIFEROL
     Dosage: UNK
     Dates: start: 2013
  8. KETAMINE HCL [Suspect]
     Active Substance: KETAMINE HYDROCHLORIDE
     Dosage: UNK
  9. DEPO-MEDROL [Suspect]
     Active Substance: METHYLPREDNISOLONE ACETATE
     Indication: INTERVERTEBRAL DISC PROTRUSION
     Dosage: 80 MG (40 MG IN LUMBAR AND 40 MG IN CERVICAL), UNK
     Route: 008
     Dates: start: 201303, end: 2014
  10. PAXIL [Concomitant]
     Active Substance: PAROXETINE HYDROCHLORIDE
     Indication: STRESS
  11. IMITREX [Concomitant]
     Active Substance: SUMATRIPTAN SUCCINATE
     Dosage: UNK
     Dates: start: 2006
  12. NEURONTIN [Concomitant]
     Active Substance: GABAPENTIN
  13. DEPO-MEDROL [Suspect]
     Active Substance: METHYLPREDNISOLONE ACETATE
     Indication: PAIN
     Dosage: UNK
     Route: 058
     Dates: start: 2013, end: 2014
  14. PROPRANOLOL [Concomitant]
     Active Substance: PROPRANOLOL HYDROCHLORIDE
     Dosage: UNK
     Dates: start: 2012
  15. VICODIN [Concomitant]
     Active Substance: ACETAMINOPHEN\HYDROCODONE BITARTRATE
     Dosage: UNK
     Dates: start: 2006
  16. TOPAMAX [Concomitant]
     Active Substance: TOPIRAMATE
     Dosage: UNK
     Dates: start: 2011, end: 2012
  17. FLONASE [Concomitant]
     Active Substance: FLUTICASONE PROPIONATE
     Dosage: UNK
     Dates: start: 1996
  18. PAXIL [Concomitant]
     Active Substance: PAROXETINE HYDROCHLORIDE
     Indication: PALPITATIONS
     Dosage: UNK
     Dates: start: 2011, end: 2012
  19. SYMBICORT [Concomitant]
     Active Substance: BUDESONIDE\FORMOTEROL FUMARATE DIHYDRATE

REACTIONS (28)
  - Functional gastrointestinal disorder [Not Recovered/Not Resolved]
  - Stress [Unknown]
  - Cardiac disorder [Recovered/Resolved]
  - Blindness [Not Recovered/Not Resolved]
  - Injection site pruritus [Unknown]
  - Vision blurred [Not Recovered/Not Resolved]
  - Weight decreased [Recovered/Resolved]
  - Herpes zoster [Recovered/Resolved]
  - Anxiety [Unknown]
  - Condition aggravated [Recovered/Resolved]
  - Palpitations [Unknown]
  - Bladder dysfunction [Not Recovered/Not Resolved]
  - Injection site pain [Unknown]
  - Spondylitis [Unknown]
  - Exostosis [Unknown]
  - Condition aggravated [Unknown]
  - Incorrect route of product administration [Recovered/Resolved]
  - Pain [Recovered/Resolved]
  - Asthma [Unknown]
  - Skin disorder [Unknown]
  - Impaired work ability [Unknown]
  - Dyspnoea [Unknown]
  - Intervertebral disc degeneration [Unknown]
  - Haemorrhage [Recovered/Resolved]
  - Loss of personal independence in daily activities [Unknown]
  - Urinary incontinence [Not Recovered/Not Resolved]
  - Inflammation [Unknown]
  - Intervertebral disc protrusion [Not Recovered/Not Resolved]

NARRATIVE: CASE EVENT DATE: 201303
